FAERS Safety Report 9492852 (Version 1)
Quarter: 2013Q3

REPORT INFORMATION
  Report Type: Spontaneous
  Country: US (occurrence: US)
  Receive Date: 20130831
  Receipt Date: 20130831
  Transmission Date: 20140515
  Serious: Yes (Other)
  Sender: FDA-Public Use
  Company Number: US-TEVA-429402USA

PATIENT
  Age: 70 Year
  Sex: Female
  Weight: 52.21 kg

DRUGS (4)
  1. COPAXONE [Suspect]
     Indication: MULTIPLE SCLEROSIS
     Dates: start: 199907, end: 201308
  2. AMPYRA [Concomitant]
  3. ATENOLOL [Concomitant]
  4. MULTIVITAMIN [Concomitant]

REACTIONS (11)
  - Demyelination [Not Recovered/Not Resolved]
  - Angioedema [Not Recovered/Not Resolved]
  - Dyspnoea [Recovered/Resolved]
  - Hyperhidrosis [Unknown]
  - Lip oedema [Unknown]
  - Injection site warmth [Unknown]
  - Injection site pruritus [Unknown]
  - Lip pain [Unknown]
  - Oral discomfort [Unknown]
  - Nausea [Unknown]
  - Melanocytic naevus [Unknown]
